FAERS Safety Report 23055288 (Version 1)
Quarter: 2023Q4

REPORT INFORMATION
  Report Type: Spontaneous
  Country: US (occurrence: US)
  Receive Date: 20231011
  Receipt Date: 20231011
  Transmission Date: 20240110
  Serious: Yes (Hospitalization)
  Sender: FDA-Public Use
  Company Number: US-MYLANLABS-2023M1106341

PATIENT
  Age: 68 Year
  Sex: Female

DRUGS (1)
  1. DIPHENHYDRAMINE [Suspect]
     Active Substance: DIPHENHYDRAMINE
     Indication: Product used for unknown indication
     Dosage: UNK (RECEIVED HANDFUL OF TABLETS)
     Route: 065

REACTIONS (2)
  - Toxicity to various agents [Recovered/Resolved]
  - Oculogyric crisis [Recovered/Resolved]
